FAERS Safety Report 5831154-8 (Version None)
Quarter: 2008Q3

REPORT INFORMATION
  Report Type: 
  Country: None (occurrence: None)
  Receive Date: 20080801
  Receipt Date: 20080501
  Transmission Date: 20090109
  Serious: No
  Sender: FDA-Public Use
  Company Number: US-BRISTOL-MYERS SQUIBB COMPANY-14173132

PATIENT
  Age: 84 Year
  Sex: Male
  Weight: 60 kg

DRUGS (10)
  1. COUMADIN [Suspect]
     Indication: ATRIAL FIBRILLATION
     Dosage: ALSO TAKING COUMADIN 2MG 1/2 TAB+1MG 1/2 TAB 4 TIMES PER WEEK (1 YEAR)
  2. LASIX [Concomitant]
  3. SYNTHROID [Concomitant]
  4. LANOXIN [Concomitant]
  5. LIPITOR [Concomitant]
  6. LUPRON [Concomitant]
  7. VITAMIN B6 [Concomitant]
  8. VITAMIN B-12 [Concomitant]
  9. ASCORBIC ACID [Concomitant]
  10. CALCIUM [Concomitant]

REACTIONS (1)
  - CONTUSION [None]
